FAERS Safety Report 11389950 (Version 2)
Quarter: 2015Q3

REPORT INFORMATION
  Report Type: Spontaneous
  Country: JP (occurrence: JP)
  Receive Date: 20150818
  Receipt Date: 20150818
  Transmission Date: 20151125
  Serious: Yes (Death, Other)
  Sender: FDA-Public Use
  Company Number: PHHY2015JP096902

PATIENT
  Age: 56 Year
  Sex: Male

DRUGS (6)
  1. DOCETAXEL. [Suspect]
     Active Substance: DOCETAXEL
     Dosage: 50 UNK, UNK
     Route: 065
  2. DOCETAXEL. [Suspect]
     Active Substance: DOCETAXEL
     Indication: PROSTATE CANCER
     Dosage: 70 MG/M2, UNK
     Route: 065
  3. PREDNISONE. [Suspect]
     Active Substance: PREDNISONE
     Indication: PROSTATE CANCER
     Route: 065
  4. CARBOPLATIN. [Suspect]
     Active Substance: CARBOPLATIN
     Indication: PROSTATE CANCER
     Route: 065
  5. TEGAFUR W/URACIL [Suspect]
     Active Substance: TEGAFUR\URACIL
     Indication: PROSTATE CANCER
     Route: 065
  6. ESTRAMUSTINE [Suspect]
     Active Substance: ESTRAMUSTINE
     Indication: PROSTATIC SPECIFIC ANTIGEN INCREASED
     Route: 065

REACTIONS (7)
  - Metastases to liver [Fatal]
  - General physical health deterioration [Unknown]
  - Leukopenia [Unknown]
  - Disease progression [Fatal]
  - Interstitial lung disease [Unknown]
  - Metastases to bone [Fatal]
  - Bone marrow failure [Unknown]
